FAERS Safety Report 25884080 (Version 2)
Quarter: 2025Q4

REPORT INFORMATION
  Report Type: Spontaneous
  Country: JP (occurrence: JP)
  Receive Date: 20251006
  Receipt Date: 20251106
  Transmission Date: 20260118
  Serious: Yes (Death, Hospitalization, Other)
  Sender: AMGEN
  Company Number: JP-AMGEN-JPNSP2025194982

PATIENT

DRUGS (1)
  1. BEVACIZUMAB [Suspect]
     Active Substance: BEVACIZUMAB
     Indication: Product used for unknown indication
     Dosage: UNK, INJECTION
     Route: 065

REACTIONS (7)
  - Death [Fatal]
  - Appendicitis [Unknown]
  - Post procedural complication [Unknown]
  - Intestinal obstruction [Unknown]
  - Gastrointestinal perforation [Unknown]
  - Gallbladder rupture [Unknown]
  - Procedural haemorrhage [Unknown]
